FAERS Safety Report 5819003-5 (Version None)
Quarter: 2008Q3

REPORT INFORMATION
  Report Type: 
  Country: None (occurrence: None)
  Receive Date: 20080721
  Receipt Date: 20080721
  Transmission Date: 20090109
  Serious: Yes (Disabling)
  Sender: FDA-Public Use
  Company Number: None

PATIENT
  Sex: Female

DRUGS (1)
  1. CHLORAPREP WITH TINT [Suspect]
     Indication: PREOPERATIVE CARE
     Dosage: TOP
     Route: 061
     Dates: start: 20080610, end: 20080610

REACTIONS (4)
  - BURNS SECOND DEGREE [None]
  - BURNS THIRD DEGREE [None]
  - IATROGENIC INJURY [None]
  - PROCEDURAL COMPLICATION [None]
